FAERS Safety Report 21519648 (Version 2)
Quarter: 2022Q4

REPORT INFORMATION
  Report Type: Spontaneous
  Country: AU (occurrence: AU)
  Receive Date: 20221028
  Receipt Date: 20221104
  Transmission Date: 20230113
  Serious: Yes (Other)
  Sender: FDA-Public Use
  Company Number: AU-MLMSERVICE-20221011-3839891-1

PATIENT
  Sex: Male

DRUGS (7)
  1. MYCOPHENOLIC ACID [Suspect]
     Active Substance: MYCOPHENOLIC ACID
     Indication: Immunoglobulin G4 related disease
     Route: 048
  2. PREDNISOLONE [Concomitant]
     Active Substance: PREDNISOLONE
     Indication: Immunoglobulin G4 related disease
     Dosage: 10-15 MG/DAY
  3. PREDNISOLONE [Concomitant]
     Active Substance: PREDNISOLONE
     Indication: Immunoglobulin G4 related disease
     Dosage: INCREASING PREDNISOLONE TO 25 MG/DAY FOR 3-5 DAYS; INCREASED TO 25 MG/DAY WITH A SLOW TAPER OF 5 MG
  4. PREDNISOLONE [Concomitant]
     Active Substance: PREDNISOLONE
     Indication: Immunoglobulin G4 related disease
     Dosage: TAPERING PREDNISOLONE BELOW 10 MG/DAY
  5. PREDNISOLONE [Concomitant]
     Active Substance: PREDNISOLONE
     Indication: Immunoglobulin G4 related disease
     Dosage: INCREASED TO 25 MG/DAY WITH A SLOW TAPER OF 5 MG EVERY FORTNIGHT TO 15 MG/DAY
  6. PREDNISOLONE [Concomitant]
     Active Substance: PREDNISOLONE
     Indication: Immunoglobulin G4 related disease
     Dosage: 10-15 MG/DAY; INCREASED TO 25 MG/DAY WITH A SLOW TAPER OF 5 MG EVERY FORTNIGHT TO 15 MG/DAY
  7. MYCOPHENOLIC ACID [Suspect]
     Active Substance: MYCOPHENOLIC ACID
     Indication: Immunoglobulin G4 related disease
     Route: 048

REACTIONS (2)
  - Pancytopenia [Not Recovered/Not Resolved]
  - Off label use [Unknown]
